FAERS Safety Report 21959797 (Version 1)
Quarter: 2023Q1

REPORT INFORMATION
  Report Type: Spontaneous
  Country: US (occurrence: US)
  Receive Date: 20230206
  Receipt Date: 20230206
  Transmission Date: 20230417
  Serious: No
  Sender: FDA-Public Use
  Company Number: US-SUNOVION-2023SUN000201AA

PATIENT
  Sex: Male
  Weight: 89.342 kg

DRUGS (9)
  1. LATUDA [Suspect]
     Active Substance: LURASIDONE HYDROCHLORIDE
     Indication: Bipolar disorder
     Dosage: 60 MG, HS
     Route: 048
  2. LATUDA [Suspect]
     Active Substance: LURASIDONE HYDROCHLORIDE
     Indication: Mania
     Dosage: 40 MG, QD
     Route: 048
  3. DEPAKOTE [Suspect]
     Active Substance: DIVALPROEX SODIUM
     Indication: Insomnia
     Dosage: 500 MG, BID (PRESCRIBED BID BUT TAKES BOTH AT NIGHT AS MAKES HIM TIRED)
  4. DEPAKOTE [Suspect]
     Active Substance: DIVALPROEX SODIUM
     Indication: Affective disorder
  5. LOSARTAN [Concomitant]
     Active Substance: LOSARTAN
     Indication: Hypertension
     Dosage: 50 MG
  6. ATORVASTATIN [Concomitant]
     Active Substance: ATORVASTATIN
     Indication: Blood cholesterol increased
     Dosage: 40 MG
  7. GLIPIZIDE [Concomitant]
     Active Substance: GLIPIZIDE
     Indication: Type 2 diabetes mellitus
     Dosage: 5 MG, BID
  8. COGENTIN [Concomitant]
     Active Substance: BENZTROPINE MESYLATE
     Indication: Sleep disorder
     Dosage: 1 MG (HELPS WITH NIGHTMARES AS A SE OF DEPAKOTE)
     Route: 065
  9. REMERON [Concomitant]
     Active Substance: MIRTAZAPINE
     Indication: Sleep disorder
     Dosage: 30 MG

REACTIONS (5)
  - Gait disturbance [Unknown]
  - Nightmare [Unknown]
  - Weight decreased [Unknown]
  - Somnolence [Unknown]
  - Tremor [Unknown]
